FAERS Safety Report 9332432 (Version 1)
Quarter: 2013Q2

REPORT INFORMATION
  Report Type: Spontaneous
  Country: GB (occurrence: GB)
  Receive Date: 20130606
  Receipt Date: 20130606
  Transmission Date: 20140414
  Serious: Yes (Other)
  Sender: FDA-Public Use
  Company Number: GB-ACCORD-017871

PATIENT
  Sex: Female

DRUGS (7)
  1. AMLODIPINE [Suspect]
     Indication: HYPERTENSION
     Route: 048
     Dates: end: 20130515
  2. METFORMIN [Concomitant]
  3. SIMVASTATIN [Concomitant]
  4. FENOFIBRATE [Concomitant]
  5. SITAGLIPTIN [Concomitant]
  6. RAMIPRIL [Concomitant]
  7. GLIBENCLAMIDE [Concomitant]

REACTIONS (3)
  - Loose tooth [Unknown]
  - Gingival hypertrophy [Not Recovered/Not Resolved]
  - Discomfort [Unknown]
